FAERS Safety Report 4518878-X (Version None)
Quarter: 2004Q4

REPORT INFORMATION
  Report Type: 
  Country: None (occurrence: None)
  Receive Date: 20041201
  Receipt Date: 20041117
  Transmission Date: 20050328
  Serious: Yes (Other)
  Sender: FDA-Public Use
  Company Number: SUS1-2004-00635

PATIENT
  Age: 70 Year
  Sex: Male
  Weight: 76.2 kg

DRUGS (17)
  1. AGRYLIN [Suspect]
     Indication: POLYCYTHAEMIA VERA
     Dosage: 0.5 MG, 3X/DAY:TID,
     Dates: start: 20040909, end: 20041007
  2. HYDREA (HYDOXYCARBAMIDE) [Concomitant]
  3. WARFARIN SODIUM [Concomitant]
  4. ASPIRIN [Concomitant]
  5. AMLODIPINE BESYLATE [Concomitant]
  6. TOPROL-XL [Concomitant]
  7. FUROSEMIDE [Concomitant]
  8. BENICAR [Concomitant]
  9. ACIPHEX [Concomitant]
  10. ADVAIR (FLUTICASONE PROPIONATE, SALMETEROL XINAFOATE) [Concomitant]
  11. DAPSONE [Concomitant]
  12. DYAZIDE [Concomitant]
  13. LIPITOR [Concomitant]
  14. MAGIC MOUTH [Concomitant]
  15. VICODIN [Concomitant]
  16. LEXAPRO [Concomitant]
  17. ATIVAN [Concomitant]

REACTIONS (23)
  - ANISOCYTOSIS [None]
  - BLOOD POTASSIUM INCREASED [None]
  - DIARRHOEA [None]
  - DYSPHAGIA [None]
  - ELLIPTOCYTOSIS [None]
  - ERYTHEMA [None]
  - FATIGUE [None]
  - FEELING ABNORMAL [None]
  - INFLUENZA LIKE ILLNESS [None]
  - LOCALISED EXFOLIATION [None]
  - LYMPHOCYTE MORPHOLOGY ABNORMAL [None]
  - MACROCYTOSIS [None]
  - MUCOSAL INFLAMMATION [None]
  - NEUTROPHIL TOXIC GRANULATION PRESENT [None]
  - PAIN [None]
  - PLATELET AGGREGATION [None]
  - PLATELET COUNT INCREASED [None]
  - POIKILOCYTOSIS [None]
  - POLYCHROMASIA [None]
  - RASH [None]
  - RED BLOOD CELL TARGET CELLS PRESENT [None]
  - STASIS DERMATITIS [None]
  - WHITE BLOOD CELL COUNT INCREASED [None]
